FAERS Safety Report 7384174-9 (Version None)
Quarter: 2011Q1

REPORT INFORMATION
  Report Type: 
  Country: None (occurrence: None)
  Receive Date: 20110330
  Receipt Date: 20110322
  Transmission Date: 20110831
  Serious: Yes (Other)
  Sender: FDA-Public Use
  Company Number: B0708330A

PATIENT
  Age: 53 Year
  Sex: Male

DRUGS (9)
  1. MELPHALAN [Suspect]
     Indication: STEM CELL TRANSPLANT
     Route: 042
  2. CYCLOSPORINE [Concomitant]
     Dosage: 1G PER DAY
     Route: 065
  3. CARBOPLATIN [Suspect]
     Indication: PRODUCT USED FOR UNKNOWN INDICATION
     Route: 065
  4. FLUDARABINE PHOSPHATE [Suspect]
     Indication: PRODUCT USED FOR UNKNOWN INDICATION
     Route: 065
  5. MYCOPHENOLATE MOFETIL [Concomitant]
     Dosage: 1G PER DAY
     Route: 065
  6. RANIMUSTINE [Suspect]
     Indication: PRODUCT USED FOR UNKNOWN INDICATION
     Route: 065
  7. RITUXAN [Suspect]
     Indication: PRODUCT USED FOR UNKNOWN INDICATION
     Route: 042
  8. CYCLOPHOSPHAMIDE [Suspect]
     Indication: PRODUCT USED FOR UNKNOWN INDICATION
     Route: 065
  9. ETOPOSIDE [Suspect]
     Indication: PRODUCT USED FOR UNKNOWN INDICATION
     Route: 065

REACTIONS (6)
  - LYMPHOMA [None]
  - CARDIOMYOPATHY [None]
  - FLUID RETENTION [None]
  - BRAIN NATRIURETIC PEPTIDE [None]
  - CARDIAC FAILURE CONGESTIVE [None]
  - DRUG RESISTANCE [None]
